FAERS Safety Report 4284568-4 (Version None)
Quarter: 2004Q1

REPORT INFORMATION
  Report Type: 
  Country: None (occurrence: None)
  Receive Date: 20040130
  Receipt Date: 20040123
  Transmission Date: 20041129
  Serious: Yes (Hospitalization)
  Sender: FDA-Public Use
  Company Number: STA-AE-03-MTX-176

PATIENT
  Age: 46 Year
  Sex: Female

DRUGS (4)
  1. METHOTREXATE [Suspect]
     Indication: RHEUMATOID ARTHRITIS
     Dosage: 12.5 MG 1 X PER 1 WK, ORAL
     Route: 048
     Dates: start: 19860725
  2. ENBREL [Suspect]
     Indication: RHEUMATOID ARTHRITIS
     Dosage: 25 MG 2 X PER 1 WK, SC
     Route: 058
     Dates: start: 20020131
  3. NAPROXEN [Concomitant]
  4. FOLIC ACID [Concomitant]

REACTIONS (33)
  - ALPHA HAEMOLYTIC STREPTOCOCCAL INFECTION [None]
  - BACTERIAL INFECTION [None]
  - BLOOD ALBUMIN DECREASED [None]
  - BLOOD ALKALINE PHOSPHATASE INCREASED [None]
  - BLOOD BICARBONATE DECREASED [None]
  - BLOOD GLUCOSE INCREASED [None]
  - BLOOD POTASSIUM DECREASED [None]
  - BLOOD PRESSURE INCREASED [None]
  - BLOOD SODIUM DECREASED [None]
  - BONE DISORDER [None]
  - BUNDLE BRANCH BLOCK LEFT [None]
  - DEHYDRATION [None]
  - DIZZINESS [None]
  - EAR INFECTION [None]
  - ELECTROCARDIOGRAM ST SEGMENT ABNORMAL [None]
  - FIBROCYSTIC BREAST DISEASE [None]
  - HAEMATOCRIT DECREASED [None]
  - HAEMOGLOBIN DECREASED [None]
  - LYMPHOCYTE COUNT DECREASED [None]
  - MASTOIDITIS [None]
  - MENINGITIS PNEUMOCOCCAL [None]
  - MUCOSAL HAEMORRHAGE [None]
  - NEUTROPHIL COUNT INCREASED [None]
  - PCO2 DECREASED [None]
  - PNEUMOCEPHALUS [None]
  - PULMONARY CONGESTION [None]
  - RED BLOOD CELL COUNT INCREASED [None]
  - RESPIRATORY RATE INCREASED [None]
  - SEPSIS [None]
  - SINUS TACHYCARDIA [None]
  - SINUSITIS [None]
  - UPPER RESPIRATORY TRACT INFECTION [None]
  - URINE KETONE BODY PRESENT [None]
